FAERS Safety Report 25234464 (Version 1)
Quarter: 2025Q2

REPORT INFORMATION
  Report Type: Spontaneous
  Country: HR (occurrence: HR)
  Receive Date: 20250424
  Receipt Date: 20250424
  Transmission Date: 20250717
  Serious: Yes (Other)
  Sender: CHEPLAPHARM
  Company Number: None

PATIENT
  Sex: Female

DRUGS (2)
  1. OLANZAPINE [Suspect]
     Active Substance: OLANZAPINE
     Dosage: EVERY 1 DAY?; 28 TABLETS; INGESTION?DAILY DOSE: 140 MILLIGRAM
     Route: 048
     Dates: start: 202503, end: 202503
  2. NORMABEL [Suspect]
     Active Substance: DIAZEPAM
     Dosage: EVERY 1 DAY?; 10 TABLETS; INGESTION?DAILY DOSE: 50 MILLIGRAM
     Route: 048
     Dates: start: 202503, end: 202503

REACTIONS (3)
  - Intentional self-injury [Unknown]
  - Somnolence [Unknown]
  - Intentional overdose [Unknown]

NARRATIVE: CASE EVENT DATE: 20250301
